FAERS Safety Report 5287849-0 (Version None)
Quarter: 2007Q2

REPORT INFORMATION
  Report Type: 
  Country: None (occurrence: None)
  Receive Date: 20070405
  Receipt Date: 20070403
  Transmission Date: 20071010
  Serious: Yes (Life-Threatening, Hospitalization)
  Sender: FDA-Public Use
  Company Number: JP-BAYER-200710212BYL

PATIENT
  Age: 70 Year
  Sex: Male
  Weight: 43 kg

DRUGS (3)
  1. CIPROXAN-I.V. [Suspect]
     Indication: PNEUMONIA
     Dosage: TOTAL DAILY DOSE: 600 MG  UNIT DOSE: 300 MG
     Route: 042
     Dates: start: 20070307, end: 20070311
  2. CEFAMEZIN [Concomitant]
     Indication: PNEUMONIA
     Route: 040
     Dates: start: 20070227
  3. MODACIN [Concomitant]
     Indication: PNEUMONIA
     Route: 040
     Dates: start: 20070301

REACTIONS (1)
  - CONVULSION [None]
